FAERS Safety Report 4314471-2 (Version None)
Quarter: 2004Q1

REPORT INFORMATION
  Report Type: 
  Country: None (occurrence: None)
  Receive Date: 20040308
  Receipt Date: 20040303
  Transmission Date: 20041129
  Serious: Yes (Other)
  Sender: FDA-Public Use
  Company Number: 2004-03-0122

PATIENT
  Sex: Female

DRUGS (1)
  1. AERIUS (DESLORATADINE) TABLETS LIKE CLARINEX [Suspect]
     Indication: URTICARIA
     Dosage: 10 MG ONCE (SEE IMAGE)
     Dates: start: 20040201

REACTIONS (1)
  - SUPRAVENTRICULAR TACHYCARDIA [None]
